FAERS Safety Report 15283242 (Version 1)
Quarter: 2018Q3

REPORT INFORMATION
  Report Type: Spontaneous
  Country: JP (occurrence: JP)
  Receive Date: 20180816
  Receipt Date: 20180816
  Transmission Date: 20181010
  Serious: Yes (Hospitalization)
  Sender: FDA-Public Use
  Company Number: JP-JT-EVA201802243KERYXP-001

PATIENT
  Age: 59 Year
  Sex: Male

DRUGS (2)
  1. FOSRENOL [Concomitant]
     Active Substance: LANTHANUM CARBONATE
     Dosage: 1000 MG, QD
     Route: 048
  2. RIONA [Suspect]
     Active Substance: FERRIC CITRATE ANHYDROUS
     Dosage: 1500 MG, QD
     Route: 048

REACTIONS (2)
  - Diabetic ulcer [Unknown]
  - Blood phosphorus decreased [Not Recovered/Not Resolved]
